FAERS Safety Report 11331289 (Version 3)
Quarter: 2015Q4

REPORT INFORMATION
  Report Type: Report from Study
  Country: US (occurrence: US)
  Receive Date: 20150803
  Receipt Date: 20151022
  Transmission Date: 20160304
  Serious: Yes (Death, Other)
  Sender: FDA-Public Use
  Company Number: US-AMGEN-USASP2015076170

PATIENT
  Age: 64 Year
  Sex: Male

DRUGS (2)
  1. VIDAZA [Suspect]
     Active Substance: AZACITIDINE
     Indication: MYELODYSPLASTIC SYNDROME
     Route: 065
  2. NPLATE [Suspect]
     Active Substance: ROMIPLOSTIM
     Indication: PRODUCT USED FOR UNKNOWN INDICATION
     Dosage: UNK
     Route: 065

REACTIONS (8)
  - Platelet count decreased [Unknown]
  - Haemorrhagic diathesis [Unknown]
  - Coagulation time prolonged [Unknown]
  - Contusion [Unknown]
  - Death [Fatal]
  - Gallbladder disorder [Unknown]
  - Myelodysplastic syndrome [Unknown]
  - Impaired healing [Unknown]

NARRATIVE: CASE EVENT DATE: 20150930
